FAERS Safety Report 11567401 (Version 1)
Quarter: 2015Q3

REPORT INFORMATION
  Report Type: Spontaneous
  Country: US (occurrence: US)
  Receive Date: 20150916
  Receipt Date: 20150916
  Transmission Date: 20151125
  Serious: No
  Sender: FDA-Public Use
  Company Number: US-ELI_LILLY_AND_COMPANY-US200907004488

PATIENT
  Age: 80 Year
  Sex: Female

DRUGS (1)
  1. FORTEO [Suspect]
     Active Substance: TERIPARATIDE
     Dates: start: 20090707

REACTIONS (8)
  - Pain [Unknown]
  - Faecaloma [Unknown]
  - Confusional state [Unknown]
  - Diarrhoea [Recovered/Resolved]
  - Pain in extremity [Unknown]
  - Anal sphincter hypertonia [Unknown]
  - Lower extremity mass [Unknown]
  - Constipation [Not Recovered/Not Resolved]
